FAERS Safety Report 23509481 (Version 2)
Quarter: 2024Q2

REPORT INFORMATION
  Report Type: Report from Study
  Country: US (occurrence: US)
  Receive Date: 20240210
  Receipt Date: 20240411
  Transmission Date: 20240716
  Serious: Yes (Hospitalization, Other)
  Sender: FDA-Public Use
  Company Number: US-ABBVIE-5630516

PATIENT
  Age: 65 Year
  Sex: Male
  Weight: 86.182 kg

DRUGS (6)
  1. SKYRIZI [Suspect]
     Active Substance: RISANKIZUMAB-RZAA
     Indication: Crohn^s disease
     Dosage: FORM STRENGTH: 2.4 MILLILITRE(S)
     Route: 058
     Dates: start: 20230704
  2. SKYRIZI [Suspect]
     Active Substance: RISANKIZUMAB-RZAA
     Dosage: FORM STRENGTH: 2.4 MILLILITRE(S)?WEEK 12
     Route: 058
     Dates: start: 20230509, end: 20230509
  3. SKYRIZI [Suspect]
     Active Substance: RISANKIZUMAB-RZAA
     Dosage: STRENGTH: 360 MILLIGRAM
     Route: 058
  4. SKYRIZI [Suspect]
     Active Substance: RISANKIZUMAB-RZAA
     Indication: Crohn^s disease
     Dosage: FORM STRENGTH: 600 MILLIGRAM?WEEK 8
     Route: 042
     Dates: start: 20230411, end: 20230411
  5. SKYRIZI [Suspect]
     Active Substance: RISANKIZUMAB-RZAA
     Indication: Crohn^s disease
     Dosage: FORM STRENGTH: 600 MILLIGRAM?WEEK 0
     Route: 042
     Dates: start: 20230209, end: 20230209
  6. SKYRIZI [Suspect]
     Active Substance: RISANKIZUMAB-RZAA
     Indication: Crohn^s disease
     Dosage: FORM STRENGTH: 600 MILLIGRAM?WEEK 4
     Route: 042
     Dates: start: 20230309, end: 20230309

REACTIONS (9)
  - Hospitalisation [Unknown]
  - Colon operation [Unknown]
  - General physical health deterioration [Unknown]
  - Pain [Recovering/Resolving]
  - Feeding disorder [Recovering/Resolving]
  - Chronic myeloid leukaemia [Unknown]
  - Abdominal distension [Not Recovered/Not Resolved]
  - Colitis [Recovering/Resolving]
  - Ileostomy [Unknown]

NARRATIVE: CASE EVENT DATE: 20231106
